FAERS Safety Report 6780068-8 (Version None)
Quarter: 2010Q2

REPORT INFORMATION
  Report Type: 
  Country: None (occurrence: None)
  Receive Date: 20100618
  Receipt Date: 20100608
  Transmission Date: 20101027
  Serious: Yes (Other)
  Sender: FDA-Public Use
  Company Number: US-PFIZER INC-2010056278

PATIENT
  Sex: Male

DRUGS (1)
  1. LIPITOR [Suspect]
     Dosage: 10 MG, UNK

REACTIONS (13)
  - AMNESIA [None]
  - ASTHENIA [None]
  - CEREBRAL THROMBOSIS [None]
  - EXOSTOSIS [None]
  - HAEMORRHAGE [None]
  - HAEMORRHOIDS [None]
  - HYPOAESTHESIA [None]
  - KNEE OPERATION [None]
  - MENISCUS LESION [None]
  - MYALGIA [None]
  - NEOPLASM SKIN [None]
  - SURGERY [None]
  - TOOTH EXTRACTION [None]
